FAERS Safety Report 4825922-9 (Version None)
Quarter: 2005Q4

REPORT INFORMATION
  Report Type: 
  Country: None (occurrence: None)
  Receive Date: 20051111
  Receipt Date: 20051102
  Transmission Date: 20060501
  Serious: Yes (Other)
  Sender: FDA-Public Use
  Company Number: US-JNJFOC-20051101006

PATIENT
  Age: 64 Year
  Sex: Female

DRUGS (2)
  1. REGRANEX [Suspect]
     Route: 061
  2. HYPERBARIC OXYGEN [Concomitant]

REACTIONS (2)
  - BLINDNESS [None]
  - PAIN IN EXTREMITY [None]
